FAERS Safety Report 10368586 (Version 1)
Quarter: 2014Q3

REPORT INFORMATION
  Report Type: Spontaneous
  Country: US (occurrence: None)
  Receive Date: 20140806
  Receipt Date: 20140806
  Transmission Date: 20150326
  Serious: Yes (Other)
  Sender: FDA-Public Use
  Company Number: None

PATIENT
  Age: 48 Year
  Sex: Female

DRUGS (1)
  1. COPAXONE [Suspect]
     Active Substance: GLATIRAMER ACETATE
     Indication: MULTIPLE SCLEROSIS
     Route: 058
     Dates: start: 20140711

REACTIONS (6)
  - Diarrhoea [None]
  - Asthenia [None]
  - Gastric ulcer [None]
  - Weight decreased [None]
  - Nausea [None]
  - Fall [None]

NARRATIVE: CASE EVENT DATE: 20140801
